FAERS Safety Report 10236273 (Version 1)
Quarter: 2014Q2

REPORT INFORMATION
  Report Type: Spontaneous
  Country: US (occurrence: None)
  Receive Date: 20140612
  Receipt Date: 20140612
  Transmission Date: 20141212
  Serious: No
  Sender: FDA-Public Use
  Company Number: None

PATIENT
  Age: 46 Year
  Sex: Male

DRUGS (3)
  1. FENTANYL [Suspect]
     Indication: PAIN
     Dosage: 15 PATCHES  1 PATCH Q 48 HRS TRANSDERMAL
     Route: 062
     Dates: start: 20140523, end: 20140611
  2. GABAPENTIN [Concomitant]
  3. PAROXETINE HCL [Concomitant]

REACTIONS (3)
  - Device adhesion issue [None]
  - Therapeutic response decreased [None]
  - Drug ineffective [None]
